FAERS Safety Report 11873033 (Version 1)
Quarter: 2015Q4

REPORT INFORMATION
  Report Type: Spontaneous
  Country: US (occurrence: US)
  Receive Date: 20151228
  Receipt Date: 20151228
  Transmission Date: 20160305
  Serious: Yes (Hospitalization)
  Sender: FDA-Public Use
  Company Number: US-PFIZER INC-2015469563

PATIENT
  Age: 68 Year
  Sex: Female
  Weight: 64 kg

DRUGS (8)
  1. METHYLPREDNISOLONE. [Suspect]
     Active Substance: METHYLPREDNISOLONE
     Indication: DRUG HYPERSENSITIVITY
     Dosage: 4 MG, 6X/DAY
     Route: 048
     Dates: start: 201510, end: 201510
  2. METHYLPREDNISOLONE. [Suspect]
     Active Substance: METHYLPREDNISOLONE
     Dosage: 4 MG, 3X/DAY
     Route: 048
     Dates: start: 201510, end: 201510
  3. ALBUTEROL. [Concomitant]
     Active Substance: ALBUTEROL
     Indication: ASTHMA
     Dosage: UNK
  4. CLARITHROMYCIN. [Concomitant]
     Active Substance: CLARITHROMYCIN
     Indication: PNEUMONIA
     Dosage: 500 MG, 2X/DAY
     Route: 048
     Dates: start: 20151020, end: 20151030
  5. ALBUTEROL. [Concomitant]
     Active Substance: ALBUTEROL
     Indication: PHARYNGEAL OEDEMA
  6. METHYLPREDNISOLONE. [Suspect]
     Active Substance: METHYLPREDNISOLONE
     Dosage: 4 MG, 5X/DAY
     Route: 048
     Dates: start: 201510, end: 201510
  7. ATORVASTATIN [Concomitant]
     Active Substance: ATORVASTATIN
     Indication: BLOOD CHOLESTEROL ABNORMAL
     Dosage: 10 MG, 1X/DAY
     Route: 048
     Dates: start: 2014
  8. METHYLPREDNISOLONE. [Suspect]
     Active Substance: METHYLPREDNISOLONE
     Dosage: 4 MG, 4X/DAY
     Route: 048
     Dates: start: 201510, end: 201510

REACTIONS (2)
  - Palpitations [Recovered/Resolved]
  - Musculoskeletal pain [Recovered/Resolved]

NARRATIVE: CASE EVENT DATE: 2015
